FAERS Safety Report 17004371 (Version 1)
Quarter: 2019Q4

REPORT INFORMATION
  Report Type: Spontaneous
  Country: US (occurrence: US)
  Receive Date: 20191107
  Receipt Date: 20191107
  Transmission Date: 20200122
  Serious: No
  Sender: FDA-Public Use
  Company Number: US-009507513-1911USA002270

PATIENT
  Age: 18 Year
  Sex: Female
  Weight: 79.82 kg

DRUGS (1)
  1. NEXPLANON [Suspect]
     Active Substance: ETONOGESTREL
     Indication: CONTRACEPTION
     Dosage: 1 DOSAGE FORM
     Route: 059
     Dates: start: 20191007, end: 20191029

REACTIONS (5)
  - Device expulsion [Recovered/Resolved]
  - Implant site erythema [Unknown]
  - Implant site infection [Unknown]
  - Wrong technique in product usage process [Unknown]
  - Device expulsion [Recovered/Resolved]

NARRATIVE: CASE EVENT DATE: 20191022
